FAERS Safety Report 13739661 (Version 1)
Quarter: 2017Q3

REPORT INFORMATION
  Report Type: Spontaneous
  Country: US (occurrence: US)
  Receive Date: 20170711
  Receipt Date: 20170711
  Transmission Date: 20171127
  Serious: No
  Sender: FDA-Public Use
  Company Number: US-GLAXOSMITHKLINE-US2017GSK106320

PATIENT
  Sex: Male

DRUGS (1)
  1. SORIATANE [Suspect]
     Active Substance: ACITRETIN
     Indication: PSORIASIS
     Dosage: 10 MG, UNK
     Dates: start: 1992

REACTIONS (3)
  - Ill-defined disorder [Unknown]
  - Drug dose omission [Unknown]
  - Psoriasis [Unknown]
